APPROVED DRUG PRODUCT: NEBIVOLOL HYDROCHLORIDE
Active Ingredient: NEBIVOLOL HYDROCHLORIDE
Strength: EQ 10MG BASE
Dosage Form/Route: TABLET;ORAL
Application: A203828 | Product #003 | TE Code: AB
Applicant: INDCHEMIE HEALTH SPECIALTIES PVT LTD
Approved: Jul 29, 2015 | RLD: No | RS: No | Type: RX